FAERS Safety Report 25452275 (Version 5)
Quarter: 2025Q4

REPORT INFORMATION
  Report Type: Report from Study
  Country: EU (occurrence: EU)
  Receive Date: 20250618
  Receipt Date: 20251223
  Transmission Date: 20260117
  Serious: Yes (Hospitalization, Other)
  Sender: MYLAN
  Company Number: EU-SANDOZ-SDZ2025DE038987

PATIENT
  Age: 18 Year
  Sex: Female
  Weight: 58.8 kg

DRUGS (44)
  1. CELECOXIB [Suspect]
     Active Substance: CELECOXIB
     Indication: Psoriatic arthropathy
     Dosage: 200 MG
     Dates: start: 20230216, end: 20230926
  2. CELECOXIB [Suspect]
     Active Substance: CELECOXIB
     Dosage: 200 MG
     Route: 065
     Dates: start: 20230216, end: 20230926
  3. CELECOXIB [Suspect]
     Active Substance: CELECOXIB
     Dosage: 200 MG
     Route: 065
     Dates: start: 20230216, end: 20230926
  4. CELECOXIB [Suspect]
     Active Substance: CELECOXIB
     Dosage: 200 MG
     Dates: start: 20230216, end: 20230926
  5. METHOTREXATE [Suspect]
     Active Substance: METHOTREXATE
     Indication: Psoriatic arthropathy
     Dosage: 7.5 MILLIGRAM
     Dates: start: 20230617, end: 20240306
  6. METHOTREXATE [Suspect]
     Active Substance: METHOTREXATE
     Dosage: 7.5 MILLIGRAM
     Route: 058
     Dates: start: 20230617, end: 20240306
  7. METHOTREXATE [Suspect]
     Active Substance: METHOTREXATE
     Dosage: 7.5 MILLIGRAM
     Route: 058
     Dates: start: 20230617, end: 20240306
  8. METHOTREXATE [Suspect]
     Active Substance: METHOTREXATE
     Dosage: 7.5 MILLIGRAM
     Dates: start: 20230617, end: 20240306
  9. ETORICOXIB [Suspect]
     Active Substance: ETORICOXIB
     Indication: Psoriatic arthropathy
     Dosage: 90 MG
     Dates: start: 20211008, end: 20221116
  10. ETORICOXIB [Suspect]
     Active Substance: ETORICOXIB
     Indication: Product used for unknown indication
     Dosage: 90 MG
     Route: 065
     Dates: start: 20211008, end: 20221116
  11. ETORICOXIB [Suspect]
     Active Substance: ETORICOXIB
     Dosage: 90 MG
     Route: 065
     Dates: start: 20211008, end: 20221116
  12. ETORICOXIB [Suspect]
     Active Substance: ETORICOXIB
     Dosage: 90 MG
     Dates: start: 20211008, end: 20221116
  13. HYRIMOZ [Suspect]
     Active Substance: ADALIMUMAB-ADAZ
     Indication: Psoriatic arthropathy
     Dosage: 40 MG
     Route: 065
     Dates: start: 20220428, end: 20220809
  14. HYRIMOZ [Suspect]
     Active Substance: ADALIMUMAB-ADAZ
     Indication: Product used for unknown indication
     Dosage: 40 MG
     Route: 065
     Dates: start: 20220428, end: 20220809
  15. HYRIMOZ [Suspect]
     Active Substance: ADALIMUMAB-ADAZ
     Dosage: 40 MG
     Route: 065
     Dates: start: 20220428, end: 20220809
  16. HYRIMOZ [Suspect]
     Active Substance: ADALIMUMAB-ADAZ
     Dosage: 40 MG
     Route: 065
     Dates: start: 20220428, end: 20220809
  17. IBUPROFEN [Suspect]
     Active Substance: IBUPROFEN
     Indication: Psoriatic arthropathy
     Dosage: 600 MG
     Route: 065
     Dates: start: 20221117, end: 20230215
  18. IBUPROFEN [Suspect]
     Active Substance: IBUPROFEN
     Dosage: 600 MG
     Route: 065
     Dates: start: 20221117, end: 20230215
  19. IBUPROFEN [Suspect]
     Active Substance: IBUPROFEN
     Dosage: 600 MG
     Route: 065
     Dates: start: 20221117, end: 20230215
  20. IBUPROFEN [Suspect]
     Active Substance: IBUPROFEN
     Dosage: 600 MG
     Route: 065
     Dates: start: 20221117, end: 20230215
  21. IBUPROFEN [Suspect]
     Active Substance: IBUPROFEN
     Dosage: 1600 MG
     Route: 065
     Dates: start: 20230927, end: 20240319
  22. IBUPROFEN [Suspect]
     Active Substance: IBUPROFEN
     Dosage: 1600 MG
     Route: 065
     Dates: start: 20230927, end: 20240319
  23. IBUPROFEN [Suspect]
     Active Substance: IBUPROFEN
     Dosage: 1600 MG
     Route: 065
     Dates: start: 20230927, end: 20240319
  24. IBUPROFEN [Suspect]
     Active Substance: IBUPROFEN
     Dosage: 1600 MG
     Route: 065
     Dates: start: 20230927, end: 20240319
  25. COSENTYX [Suspect]
     Active Substance: SECUKINUMAB
     Indication: Psoriatic arthropathy
     Dosage: 300 MILLIGRAM
     Dates: start: 20220810, end: 20230215
  26. COSENTYX [Suspect]
     Active Substance: SECUKINUMAB
     Indication: Axial spondyloarthritis
     Dosage: 300 MILLIGRAM
     Route: 065
     Dates: start: 20220810, end: 20230215
  27. COSENTYX [Suspect]
     Active Substance: SECUKINUMAB
     Dosage: 300 MILLIGRAM
     Route: 065
     Dates: start: 20220810, end: 20230215
  28. COSENTYX [Suspect]
     Active Substance: SECUKINUMAB
     Dosage: 300 MILLIGRAM
     Dates: start: 20220810, end: 20230215
  29. DAPAGLIFLOZIN [Suspect]
     Active Substance: DAPAGLIFLOZIN
     Indication: Chronic kidney disease
     Dosage: 10 MILLIGRAM
     Route: 061
     Dates: start: 20250603, end: 20250701
  30. DAPAGLIFLOZIN [Suspect]
     Active Substance: DAPAGLIFLOZIN
     Dosage: 10 MILLIGRAM
     Route: 048
     Dates: start: 20250603, end: 20250701
  31. DAPAGLIFLOZIN [Suspect]
     Active Substance: DAPAGLIFLOZIN
     Dosage: 10 MILLIGRAM
     Route: 048
     Dates: start: 20250603, end: 20250701
  32. DAPAGLIFLOZIN [Suspect]
     Active Substance: DAPAGLIFLOZIN
     Dosage: 10 MILLIGRAM
     Route: 061
     Dates: start: 20250603, end: 20250701
  33. RAMIPRIL [Concomitant]
     Active Substance: RAMIPRIL
     Indication: Alport^s syndrome
     Dosage: 6.25 MILLIGRAM, QD
     Route: 061
     Dates: start: 2013
  34. RAMIPRIL [Concomitant]
     Active Substance: RAMIPRIL
     Dosage: 6.25 MILLIGRAM, QD
     Route: 048
     Dates: start: 2013
  35. RAMIPRIL [Concomitant]
     Active Substance: RAMIPRIL
     Dosage: 6.25 MILLIGRAM, QD
     Route: 048
     Dates: start: 2013
  36. RAMIPRIL [Concomitant]
     Active Substance: RAMIPRIL
     Dosage: 6.25 MILLIGRAM, QD
     Route: 061
     Dates: start: 2013
  37. ETANERCEPT [Concomitant]
     Active Substance: ETANERCEPT
     Indication: Psoriatic arthropathy
     Dosage: 50 MILLIGRAM
     Dates: start: 20211015, end: 20220428
  38. ETANERCEPT [Concomitant]
     Active Substance: ETANERCEPT
     Dosage: 50 MILLIGRAM
     Route: 065
     Dates: start: 20211015, end: 20220428
  39. ETANERCEPT [Concomitant]
     Active Substance: ETANERCEPT
     Dosage: 50 MILLIGRAM
     Route: 065
     Dates: start: 20211015, end: 20220428
  40. ETANERCEPT [Concomitant]
     Active Substance: ETANERCEPT
     Dosage: 50 MILLIGRAM
     Dates: start: 20211015, end: 20220428
  41. TREMFYA [Concomitant]
     Active Substance: GUSELKUMAB
     Indication: Psoriatic arthropathy
     Dosage: 100 MILLIGRAM
     Dates: start: 20230216, end: 20240306
  42. TREMFYA [Concomitant]
     Active Substance: GUSELKUMAB
     Dosage: 100 MILLIGRAM
     Route: 065
     Dates: start: 20230216, end: 20240306
  43. TREMFYA [Concomitant]
     Active Substance: GUSELKUMAB
     Dosage: 100 MILLIGRAM
     Route: 065
     Dates: start: 20230216, end: 20240306
  44. TREMFYA [Concomitant]
     Active Substance: GUSELKUMAB
     Dosage: 100 MILLIGRAM
     Dates: start: 20230216, end: 20240306

REACTIONS (12)
  - Lung adenocarcinoma stage IV [Unknown]
  - Metastases to lymph nodes [Unknown]
  - Metastases to liver [Unknown]
  - Pericardial effusion malignant [Unknown]
  - Syncope [Unknown]
  - Weight decreased [Recovered/Resolved]
  - Hyponatraemia [Recovered/Resolved]
  - Blood pressure decreased [Unknown]
  - Neurological symptom [Unknown]
  - Blood urea increased [Unknown]
  - Dizziness [Unknown]
  - Asthma [Unknown]

NARRATIVE: CASE EVENT DATE: 20231215
